FAERS Safety Report 9496748 (Version 1)
Quarter: 2013Q3

REPORT INFORMATION
  Report Type: Spontaneous
  Country: CA (occurrence: None)
  Receive Date: 20130830
  Receipt Date: 20130830
  Transmission Date: 20140515
  Serious: Yes (Other)
  Sender: FDA-Public Use
  Company Number: 2013AP007585

PATIENT
  Age: 52 Year
  Sex: Male

DRUGS (4)
  1. HYDROCHLOROTHIAZIDE [Suspect]
  2. SIMVASTATIN (SIMVASTATIN) [Concomitant]
  3. METFORMIN (METFORMIN) [Concomitant]
  4. AMLODIPINE (AMLODIPINE) [Concomitant]

REACTIONS (1)
  - Hypersensitivity vasculitis [None]
